FAERS Safety Report 19977047 (Version 1)
Quarter: 2021Q4

REPORT INFORMATION
  Report Type: Spontaneous
  Country: US (occurrence: US)
  Receive Date: 20211021
  Receipt Date: 20211021
  Transmission Date: 20220303
  Serious: No
  Sender: FDA-Public Use
  Company Number: US-BRISTOL-MYERS SQUIBB COMPANY-BMS-2021-109510

PATIENT
  Age: 64 Year
  Sex: Male

DRUGS (3)
  1. ORENCIA [Suspect]
     Active Substance: ABATACEPT
     Indication: Rheumatoid arthritis
     Dosage: 125 MILLIGRAM, QWK
     Route: 058
     Dates: start: 20210629
  2. ORENCIA [Suspect]
     Active Substance: ABATACEPT
     Indication: Lung disorder
  3. ORENCIA [Suspect]
     Active Substance: ABATACEPT
     Indication: Cytogenetic abnormality

REACTIONS (1)
  - Palpitations [Unknown]
